FAERS Safety Report 9148573 (Version 1)
Quarter: 2013Q1

REPORT INFORMATION
  Report Type: Spontaneous
  Country: CN (occurrence: CN)
  Receive Date: 20130308
  Receipt Date: 20130308
  Transmission Date: 20140127
  Serious: Yes (Other)
  Sender: FDA-Public Use
  Company Number: CN-JNJFOC-20130215501

PATIENT
  Age: 47 Year
  Sex: Male

DRUGS (2)
  1. DUROGESIC D-TRANS [Suspect]
     Indication: CANCER PAIN
     Route: 062
     Dates: start: 20130218
  2. MORPHINE [Suspect]
     Indication: CANCER PAIN
     Route: 065

REACTIONS (1)
  - Coma [Recovered/Resolved]
